FAERS Safety Report 9169363 (Version 2)
Quarter: 2013Q3

REPORT INFORMATION
  Report Type: Report from Study
  Country: JP (occurrence: JP)
  Receive Date: 20130318
  Receipt Date: 20130702
  Transmission Date: 20140515
  Serious: Yes (Other)
  Sender: FDA-Public Use
  Company Number: JP-JNJFOC-20130306389

PATIENT
  Age: 84 Year
  Sex: Female
  Weight: 71 kg

DRUGS (15)
  1. STELARA [Suspect]
     Indication: PSORIASIS
     Route: 058
     Dates: start: 20120416
  2. STELARA [Suspect]
     Indication: PSORIASIS
     Route: 058
     Dates: start: 20120123
  3. STELARA [Suspect]
     Indication: PSORIASIS
     Route: 058
     Dates: start: 20110808
  4. STELARA [Suspect]
     Indication: PSORIASIS
     Route: 058
     Dates: start: 20110516
  5. STELARA [Suspect]
     Indication: PSORIASIS
     Route: 058
     Dates: start: 20110415
  6. STELARA [Suspect]
     Indication: PSORIASIS
     Route: 058
     Dates: start: 20120709
  7. STELARA [Suspect]
     Indication: PSORIASIS
     Route: 058
     Dates: start: 20120924
  8. STELARA [Suspect]
     Indication: PSORIASIS
     Route: 058
     Dates: start: 20121210
  9. STELARA [Suspect]
     Indication: PSORIASIS
     Route: 058
     Dates: start: 20130311
  10. STELARA [Suspect]
     Indication: PSORIASIS
     Route: 058
     Dates: start: 20111031
  11. ANTEBATE [Concomitant]
     Indication: PSORIASIS
     Route: 061
     Dates: start: 200702
  12. OXAROL [Concomitant]
     Indication: PSORIASIS
     Route: 061
     Dates: start: 201005
  13. ISCOTIN [Concomitant]
     Indication: PROPHYLAXIS
     Route: 048
     Dates: start: 20100923, end: 20110612
  14. DOVONEX [Concomitant]
     Indication: PSORIASIS
     Route: 061
     Dates: start: 201005
  15. HYDROCORTISONE BUTYRATE PROPIONATE [Concomitant]
     Indication: PSORIASIS
     Route: 061
     Dates: start: 20110218

REACTIONS (1)
  - Liver disorder [Not Recovered/Not Resolved]
